FAERS Safety Report 7883366-X (Version None)
Quarter: 2011Q4

REPORT INFORMATION
  Report Type: 
  Country: None (occurrence: None)
  Receive Date: 20111102
  Receipt Date: 20111102
  Transmission Date: 20120403
  Serious: Yes (Hospitalization)
  Sender: FDA-Public Use
  Company Number: None

PATIENT
  Age: 26 Year
  Sex: Female
  Weight: 109.3 kg

DRUGS (1)
  1. ACYCLOVIR [Suspect]
     Indication: HERPES ZOSTER
     Dosage: 600MG
     Route: 042
     Dates: start: 20110910, end: 20110919

REACTIONS (4)
  - RENAL FAILURE ACUTE [None]
  - FLANK PAIN [None]
  - PYREXIA [None]
  - CHROMATURIA [None]
